FAERS Safety Report 8810782 (Version 1)
Quarter: 2012Q4

REPORT INFORMATION
  Report Type: Spontaneous
  Country: US (occurrence: None)
  Receive Date: 20120924
  Receipt Date: 20120924
  Transmission Date: 20130627
  Serious: Yes (Hospitalization)
  Sender: FDA-Public Use
  Company Number: None

PATIENT
  Age: 58 Year
  Sex: Female
  Weight: 68.04 kg

DRUGS (1)
  1. DEXILANT [Suspect]
     Indication: GERD
     Dates: start: 20120918, end: 20120919

REACTIONS (6)
  - Hemiparesis [None]
  - Dysarthria [None]
  - Gait disturbance [None]
  - Tremor [None]
  - Disturbance in attention [None]
  - Feeling abnormal [None]
